FAERS Safety Report 13911456 (Version 1)
Quarter: 2017Q3

REPORT INFORMATION
  Report Type: Spontaneous
  Country: US (occurrence: US)
  Receive Date: 20170828
  Receipt Date: 20170828
  Transmission Date: 20171127
  Serious: No
  Sender: FDA-Public Use
  Company Number: US-ROCHE-1141461

PATIENT
  Age: 3 Year
  Sex: Male
  Weight: 12 kg

DRUGS (4)
  1. NUTROPIN AQ [Suspect]
     Active Substance: SOMATROPIN
     Indication: GROWTH HORMONE DEFICIENCY
  2. ALBUTEROL NEBULIZER [Concomitant]
     Active Substance: ALBUTEROL
  3. NUTROPIN AQ [Suspect]
     Active Substance: SOMATROPIN
     Indication: DWARFISM
     Route: 058
     Dates: start: 199705
  4. PEDIAZOLE [Concomitant]
     Active Substance: ERYTHROMYCIN ETHYLSUCCINATE\SULFISOXAZOLE ACETYL
     Dosage: 0.11 CC
     Route: 065

REACTIONS (3)
  - Chromaturia [Unknown]
  - Headache [Unknown]
  - Insomnia [Unknown]

NARRATIVE: CASE EVENT DATE: 199709
